FAERS Safety Report 19906402 (Version 1)
Quarter: 2021Q3

REPORT INFORMATION
  Report Type: Report from Study
  Country: US (occurrence: US)
  Receive Date: 20210930
  Receipt Date: 20210930
  Transmission Date: 20211014
  Serious: No
  Sender: FDA-Public Use
  Company Number: NVSC2021US221847

PATIENT
  Sex: Female

DRUGS (1)
  1. KESIMPTA [Suspect]
     Active Substance: OFATUMUMAB
     Indication: MULTIPLE SCLEROSIS
     Dosage: UNK (BENEATH THE SKIN,USUALLY VIA INJECTION)
     Route: 058
     Dates: start: 20210806

REACTIONS (3)
  - Dysphagia [Not Recovered/Not Resolved]
  - Dysarthria [Unknown]
  - Memory impairment [Unknown]
